FAERS Safety Report 18939594 (Version 2)
Quarter: 2021Q3

REPORT INFORMATION
  Report Type: Spontaneous
  Country: US (occurrence: US)
  Receive Date: 20210225
  Receipt Date: 20210831
  Transmission Date: 20211014
  Serious: Yes (Other)
  Sender: FDA-Public Use
  Company Number: US-TEVA-2021-US-1882866

PATIENT
  Age: 37 Year
  Sex: Male

DRUGS (1)
  1. BUPRENORPHINE/NALOXONE [Suspect]
     Active Substance: BUPRENORPHINE\NALOXONE
     Indication: DRUG DEPENDENCE
     Dosage: SC INJECTION OF CRUSHED BUPRENORPHINE/NALOXONE TABLETS CONTAINING CROSPOVIDONE
     Route: 058

REACTIONS (4)
  - Intentional product use issue [Unknown]
  - Foreign body reaction [Unknown]
  - Drug abuse [Unknown]
  - Subcutaneous abscess [Unknown]
